FAERS Safety Report 7010337-8 (Version None)
Quarter: 2010Q3

REPORT INFORMATION
  Report Type: 
  Country: None (occurrence: None)
  Receive Date: 20100923
  Receipt Date: 20100915
  Transmission Date: 20110219
  Serious: Yes (Other)
  Sender: FDA-Public Use
  Company Number: B0675909A

PATIENT
  Age: 40 Year
  Sex: Male

DRUGS (1)
  1. ATRIANCE [Suspect]
     Route: 065

REACTIONS (3)
  - MYELITIS [None]
  - NEUROTOXICITY [None]
  - PARAESTHESIA [None]
